FAERS Safety Report 23077964 (Version 1)
Quarter: 2023Q4

REPORT INFORMATION
  Report Type: Spontaneous
  Country: US (occurrence: US)
  Receive Date: 20231018
  Receipt Date: 20231018
  Transmission Date: 20240110
  Serious: Yes (Life-Threatening, Hospitalization, Other)
  Sender: FDA-Public Use
  Company Number: US-drreddys-LIT/USA/23/0179789

PATIENT
  Age: 68 Year
  Sex: Male

DRUGS (1)
  1. DAPTOMYCIN [Suspect]
     Active Substance: DAPTOMYCIN
     Indication: Endocarditis
     Dosage: NEARING THE END OF HIS 6-WEEK TREATMENT

REACTIONS (2)
  - Hypersensitivity pneumonitis [Recovering/Resolving]
  - Anaemia [Unknown]
